FAERS Safety Report 10100382 (Version 1)
Quarter: 2014Q2

REPORT INFORMATION
  Report Type: Spontaneous
  Country: GB (occurrence: GB)
  Receive Date: 20140423
  Receipt Date: 20140423
  Transmission Date: 20141212
  Serious: Yes (Hospitalization)
  Sender: FDA-Public Use
  Company Number: GB-009507513-1404GBR011212

PATIENT
  Age: 61 Year
  Sex: Female
  Weight: 53.97 kg

DRUGS (6)
  1. ALENDRONATE SODIUM [Suspect]
     Indication: OSTEOPOROSIS
     Route: 048
     Dates: start: 2006, end: 201402
  2. ADCAL-D3 [Concomitant]
  3. ACETAMINOPHEN (+) CODEINE PHOSPHATE [Concomitant]
  4. METHOTREXATE [Concomitant]
  5. NAPROXEN [Concomitant]
  6. OMEPRAZOLE [Concomitant]

REACTIONS (2)
  - Hip fracture [Not Recovered/Not Resolved]
  - Atypical femur fracture [Not Recovered/Not Resolved]
